FAERS Safety Report 9986842 (Version 1)
Quarter: 2014Q1

REPORT INFORMATION
  Report Type: Report from Study
  Country: CL (occurrence: CL)
  Receive Date: 20140307
  Receipt Date: 20140307
  Transmission Date: 20141002
  Serious: Yes (Hospitalization, Other)
  Sender: FDA-Public Use
  Company Number: PHHY2014CL028282

PATIENT
  Sex: Female

DRUGS (2)
  1. LEPONEX [Suspect]
     Indication: BIPOLAR DISORDER
     Dosage: 100 MG (200 MG) BID
  2. LEPONEX [Suspect]
     Indication: OFF LABEL USE

REACTIONS (4)
  - General physical health deterioration [Unknown]
  - Delirium [Unknown]
  - Bipolar disorder [Unknown]
  - Toxicity to various agents [Unknown]
